FAERS Safety Report 4519832-4 (Version None)
Quarter: 2004Q4

REPORT INFORMATION
  Report Type: 
  Country: None (occurrence: None)
  Receive Date: 20041207
  Receipt Date: 20041011
  Transmission Date: 20050328
  Serious: Yes (Hospitalization)
  Sender: FDA-Public Use
  Company Number: AU-NOVOPROD-239759

PATIENT
  Age: 59 Year
  Sex: Female
  Weight: 52 kg

DRUGS (4)
  1. INSULIN DETEMIR [Suspect]
     Indication: DIABETES MELLITUS INSULIN-DEPENDENT
     Dosage: 6 U, QD
     Route: 058
     Dates: start: 20040830
  2. NOVORAPID [Suspect]
     Indication: DIABETES MELLITUS INSULIN-DEPENDENT
     Dosage: 42 IU, QD
     Route: 058
     Dates: start: 20040830
  3. NARDIL [Concomitant]
     Dosage: 105 MG, QD
     Route: 048
     Dates: start: 20020101
  4. KLACID [Concomitant]
     Route: 048
     Dates: start: 20040924, end: 20041014

REACTIONS (9)
  - BLOOD GLUCOSE INCREASED [None]
  - CIRCULATORY COLLAPSE [None]
  - COMA [None]
  - CONFUSIONAL STATE [None]
  - CONVULSION [None]
  - DIZZINESS [None]
  - GLYCOSYLATED HAEMOGLOBIN INCREASED [None]
  - MALAISE [None]
  - WEIGHT DECREASED [None]
